FAERS Safety Report 16931048 (Version 5)
Quarter: 2022Q1

REPORT INFORMATION
  Report Type: Spontaneous
  Country: US (occurrence: US)
  Receive Date: 20191017
  Receipt Date: 20220317
  Transmission Date: 20220423
  Serious: No
  Sender: FDA-Public Use
  Company Number: US-VERTEX PHARMACEUTICALS-2019-006903

PATIENT
  Sex: Male
  Weight: 16 kg

DRUGS (1)
  1. ORKAMBI [Suspect]
     Active Substance: IVACAFTOR\LUMACAFTOR
     Indication: Cystic fibrosis
     Dosage: 1 PACKET (150MG/ 188MG GRANULES), BID
     Route: 048
     Dates: start: 20190501

REACTIONS (9)
  - Irritability [Not Recovered/Not Resolved]
  - Abnormal behaviour [Not Recovered/Not Resolved]
  - Insomnia [Unknown]
  - Pain in extremity [Recovering/Resolving]
  - Ear pain [Unknown]
  - Hypersensitivity [Not Recovered/Not Resolved]
  - Constipation [Recovering/Resolving]
  - Infective pulmonary exacerbation of cystic fibrosis [Unknown]
  - Diarrhoea [Recovered/Resolved]

NARRATIVE: CASE EVENT DATE: 20190101
